FAERS Safety Report 13652325 (Version 1)
Quarter: 2017Q2

REPORT INFORMATION
  Report Type: Spontaneous
  Country: CA (occurrence: CA)
  Receive Date: 20170614
  Receipt Date: 20170614
  Transmission Date: 20170830
  Serious: Yes (Death)
  Sender: FDA-Public Use
  Company Number: CA-TEVA-777839ACC

PATIENT
  Age: 59 Year
  Sex: Female

DRUGS (5)
  1. CLONAZEPAM. [Concomitant]
     Active Substance: CLONAZEPAM
  2. AVENTYL [Concomitant]
  3. PAROXETINE. [Suspect]
     Active Substance: PAROXETINE
     Dosage: 40 MILLIGRAM DAILY;
  4. SYNTHROID - TAB 50MCG [Concomitant]
  5. NORTRIPTYLINE [Suspect]
     Active Substance: NORTRIPTYLINE
     Dosage: 100 MILLIGRAM DAILY;

REACTIONS (1)
  - Drug level above therapeutic [Fatal]
